FAERS Safety Report 18438446 (Version 1)
Quarter: 2020Q4

REPORT INFORMATION
  Report Type: Spontaneous
  Country: ES (occurrence: ES)
  Receive Date: 20201028
  Receipt Date: 20201028
  Transmission Date: 20210114
  Serious: Yes (Life-Threatening, Hospitalization, Disabling)
  Sender: FDA-Public Use
  Company Number: ES-ELI_LILLY_AND_COMPANY-ES202010010851

PATIENT
  Age: 37 Year
  Sex: Female
  Weight: 57 kg

DRUGS (7)
  1. PREGABALIN. [Suspect]
     Active Substance: PREGABALIN
     Indication: OBSESSIVE-COMPULSIVE DISORDER
     Dosage: 75 MG DIARIOS
     Route: 048
     Dates: start: 20200715, end: 20200727
  2. QUETIAPINA ALTER [Concomitant]
     Active Substance: QUETIAPINE FUMARATE
     Indication: OBSESSIVE-COMPULSIVE DISORDER
     Dosage: 75 MG DIARIOS
     Route: 065
     Dates: start: 20200701, end: 20200715
  3. OLANZAPINE. [Suspect]
     Active Substance: OLANZAPINE
     Indication: OBSESSIVE-COMPULSIVE DISORDER
     Dosage: 5MG DIARIOS
     Route: 048
     Dates: start: 20200715, end: 20200727
  4. ANAFRANIL [Suspect]
     Active Substance: CLOMIPRAMINE HYDROCHLORIDE
     Dosage: 262.5 MG, DAILY
     Route: 048
     Dates: start: 20200716, end: 20200727
  5. ANAFRANIL [Suspect]
     Active Substance: CLOMIPRAMINE HYDROCHLORIDE
     Dosage: 75 MG, DAILY
     Route: 048
     Dates: start: 20200813
  6. ANAFRANIL [Suspect]
     Active Substance: CLOMIPRAMINE HYDROCHLORIDE
     Dosage: 187.5 MG, DAILY
     Route: 048
     Dates: start: 20200728, end: 20200812
  7. ANAFRANIL [Suspect]
     Active Substance: CLOMIPRAMINE HYDROCHLORIDE
     Indication: OBSESSIVE-COMPULSIVE DISORDER
     Dosage: 300 MG, DAILY
     Route: 048
     Dates: start: 20200701, end: 20200715

REACTIONS (1)
  - Syncope [Recovered/Resolved]

NARRATIVE: CASE EVENT DATE: 20200721
